FAERS Safety Report 17875916 (Version 2)
Quarter: 2020Q2

REPORT INFORMATION
  Report Type: Spontaneous
  Country: SK (occurrence: SK)
  Receive Date: 20200609
  Receipt Date: 20200615
  Transmission Date: 20200714
  Serious: Yes (Hospitalization, Disabling, Other)
  Sender: FDA-Public Use
  Company Number: SK-SA-2020SA143457

PATIENT

DRUGS (8)
  1. URAPIDIL STRAGEN [Concomitant]
     Active Substance: URAPIDIL HYDROCHLORIDE
  2. SERLIFT [Concomitant]
     Active Substance: SERTRALINE HYDROCHLORIDE
  3. AUBAGIO [Suspect]
     Active Substance: TERIFLUNOMIDE
     Indication: MULTIPLE SCLEROSIS
     Dosage: 1 DF, QD
     Route: 065
     Dates: start: 20190415, end: 20200514
  4. FLAVOBION [Concomitant]
  5. AMLESSA [Concomitant]
     Active Substance: AMLODIPINE BESYLATE\PERINDOPRIL ERBUMINE
  6. EBRANTIL [URAPIDIL HYDROCHLORIDE] [Concomitant]
     Dosage: 60
  7. NEBILET [Concomitant]
     Active Substance: NEBIVOLOL
  8. NEUROL [ALPRAZOLAM] [Concomitant]

REACTIONS (10)
  - Expanded disability status scale score increased [Recovered/Resolved with Sequelae]
  - Condition aggravated [Recovered/Resolved with Sequelae]
  - Gait disturbance [Recovering/Resolving]
  - Condition aggravated [Recovered/Resolved with Sequelae]
  - Nervous system disorder [Recovering/Resolving]
  - Disability [Recovered/Resolved with Sequelae]
  - Multiple sclerosis relapse [Recovered/Resolved with Sequelae]
  - Multiple sclerosis relapse [Recovering/Resolving]
  - Neurological symptom [Recovering/Resolving]
  - Vestibular disorder [Recovering/Resolving]

NARRATIVE: CASE EVENT DATE: 20190703
